FAERS Safety Report 8857937 (Version 1)
Quarter: 2012Q4

REPORT INFORMATION
  Report Type: 
  Country: US (occurrence: US)
  Receive Date: 20121024
  Receipt Date: 20121024
  Transmission Date: 20130627
  Serious: No
  Sender: FDA-Public Use
  Company Number: US-AMGEN-USASP2012003581

PATIENT
  Age: 61 Year
  Sex: Female
  Weight: 59.41 kg

DRUGS (7)
  1. ENBREL [Suspect]
     Indication: PRODUCT USED FOR UNKNOWN INDICATION
     Dosage: 50 mg, qwk
     Route: 058
  2. MULTIVITAMIN                       /00097801/ [Concomitant]
     Dosage: UNK
  3. VITAMIN C                          /00008001/ [Concomitant]
     Dosage: 500 mg, UNK
  4. FISH OIL [Concomitant]
     Dosage: UNK
  5. CALCIUM + VIT D [Concomitant]
     Dosage: UNK
  6. FORTICAL                           /00371903/ [Concomitant]
     Dosage: UNK
  7. PLAQUENIL                          /00072603/ [Concomitant]
     Dosage: 200 mg, UNK

REACTIONS (1)
  - Nasopharyngitis [Unknown]
